FAERS Safety Report 6335971-X (Version None)
Quarter: 2009Q3

REPORT INFORMATION
  Report Type: 
  Country: None (occurrence: None)
  Receive Date: 20090831
  Receipt Date: 20090831
  Transmission Date: 20100115
  Serious: No
  Sender: FDA-Public Use
  Company Number: None

PATIENT
  Sex: Female
  Weight: 83.9154 kg

DRUGS (1)
  1. OXYBUTYNIN CHLORIDE [Suspect]
     Indication: STRESS URINARY INCONTINENCE
     Dosage: 10 MG ONCE QD PO
     Route: 048
     Dates: start: 20080229, end: 20090811

REACTIONS (1)
  - HALLUCINATION [None]
